FAERS Safety Report 8335854-X (Version None)
Quarter: 2012Q2

REPORT INFORMATION
  Report Type: 
  Country: None (occurrence: None)
  Receive Date: 20120504
  Receipt Date: 20120501
  Transmission Date: 20120825
  Serious: No
  Sender: FDA-Public Use
  Company Number: US-PFIZER INC-2012106818

PATIENT
  Sex: Male

DRUGS (3)
  1. NEURONTIN [Suspect]
  2. NICOTROL [Suspect]
  3. VIAGRA [Suspect]

REACTIONS (1)
  - MALAISE [None]
